FAERS Safety Report 9705768 (Version 2)
Quarter: 2013Q4

REPORT INFORMATION
  Report Type: Spontaneous
  Country: RU (occurrence: RU)
  Receive Date: 20131122
  Receipt Date: 20131224
  Transmission Date: 20140711
  Serious: Yes (Other)
  Sender: FDA-Public Use
  Company Number: RU-AMGEN-RUSSP2013043448

PATIENT
  Age: 20 Day
  Sex: Female
  Weight: 2.16 kg

DRUGS (8)
  1. ARANESP [Suspect]
     Dosage: 60 MUG, QWK
     Route: 064
     Dates: start: 20130130
  2. ARANESP [Suspect]
     Dosage: 60 MUG, QWK
     Route: 064
     Dates: start: 20130130
  3. MIMPARA [Suspect]
     Dosage: 60 MG, QD
     Route: 064
     Dates: start: 20120604
  4. COSMOFER [Concomitant]
     Route: 064
  5. CYANOCOBALAMIN [Concomitant]
     Route: 064
  6. FOLIC ACID [Concomitant]
     Route: 064
  7. ALPHACALCIDOL [Concomitant]
     Route: 064
  8. DEXAFENICOL [Concomitant]
     Route: 064

REACTIONS (2)
  - Premature baby [Recovered/Resolved]
  - Polyuria [Unknown]
